FAERS Safety Report 13076931 (Version 1)
Quarter: 2016Q4

REPORT INFORMATION
  Report Type: Report from Study
  Country: US (occurrence: US)
  Receive Date: 20161230
  Receipt Date: 20161230
  Transmission Date: 20170207
  Serious: Yes (Death)
  Sender: FDA-Public Use
  Company Number: US-PFIZER INC-2016602582

PATIENT

DRUGS (4)
  1. CELECOXIB. [Suspect]
     Active Substance: CELECOXIB
     Indication: COLORECTAL CANCER
     Dosage: 400 MG, 2X/DAY, (STARTING DAY #1)
     Route: 048
  2. CALCIUM FOLINATE [Suspect]
     Active Substance: LEUCOVORIN CALCIUM
     Indication: COLORECTAL CANCER
     Dosage: 20 MG/M2, WEEKLY, (STARTING DAY #15)
     Route: 042
  3. FLUOROURACIL. [Suspect]
     Active Substance: FLUOROURACIL
     Indication: COLORECTAL CANCER
     Dosage: 500 MG/M2, WEEKLY, (STARTING DAY #15)
     Route: 040
  4. IRINOTECAN HCL [Suspect]
     Active Substance: IRINOTECAN HYDROCHLORIDE
     Indication: COLORECTAL CANCER
     Dosage: 125 MG/M2, WEEKLY, (STARTING DAY #15)
     Route: 042

REACTIONS (1)
  - Cardiac arrest [Fatal]
